FAERS Safety Report 19040625 (Version 1)
Quarter: 2021Q1

REPORT INFORMATION
  Report Type: Spontaneous
  Country: CA (occurrence: CA)
  Receive Date: 20210322
  Receipt Date: 20210322
  Transmission Date: 20210420
  Serious: Yes (Other)
  Sender: FDA-Public Use
  Company Number: CA-ROCHE-2790560

PATIENT
  Sex: Female

DRUGS (17)
  1. ARAVA [Concomitant]
     Active Substance: LEFLUNOMIDE
  2. RITUXIMAB. [Suspect]
     Active Substance: RITUXIMAB
     Indication: RHEUMATOID ARTHRITIS
     Route: 041
  3. HYDROCHLOROTHIAZIDE. [Concomitant]
     Active Substance: HYDROCHLOROTHIAZIDE
  4. HYDROXYCHLOROQUINE SULFATE. [Concomitant]
     Active Substance: HYDROXYCHLOROQUINE SULFATE
  5. NIFEDIPINE. [Concomitant]
     Active Substance: NIFEDIPINE
  6. TEGRETOL [Concomitant]
     Active Substance: CARBAMAZEPINE
  7. PANTOPRAZOLE MAGNESIUM [Concomitant]
     Active Substance: PANTOPRAZOLE MAGNESIUM
  8. ROSUVASTATIN CALCIUM. [Concomitant]
     Active Substance: ROSUVASTATIN CALCIUM
  9. SULFASALAZINE. [Concomitant]
     Active Substance: SULFASALAZINE
  10. ORENCIA [Suspect]
     Active Substance: ABATACEPT
     Indication: RHEUMATOID ARTHRITIS
     Route: 065
  11. FOLIC ACID. [Concomitant]
     Active Substance: FOLIC ACID
  12. METHOTREXATE. [Concomitant]
     Active Substance: METHOTREXATE
     Route: 058
  13. COZAAR [Concomitant]
     Active Substance: LOSARTAN POTASSIUM
  14. DIPHENHYDRAMINE. [Concomitant]
     Active Substance: DIPHENHYDRAMINE
     Indication: PREMEDICATION
     Route: 048
  15. METHYLPREDNISOLONE. [Concomitant]
     Active Substance: METHYLPREDNISOLONE
     Route: 042
  16. TYLENOL [Concomitant]
     Active Substance: ACETAMINOPHEN
     Route: 048
  17. XELJANZ [Suspect]
     Active Substance: TOFACITINIB CITRATE
     Indication: RHEUMATOID ARTHRITIS
     Route: 065

REACTIONS (7)
  - Vision blurred [Not Recovered/Not Resolved]
  - Dizziness [Not Recovered/Not Resolved]
  - Inflammation [Not Recovered/Not Resolved]
  - Nodal osteoarthritis [Not Recovered/Not Resolved]
  - Rheumatoid arthritis [Not Recovered/Not Resolved]
  - Treatment failure [Not Recovered/Not Resolved]
  - Headache [Not Recovered/Not Resolved]
